FAERS Safety Report 8589674-1 (Version None)
Quarter: 2012Q3

REPORT INFORMATION
  Report Type: 
  Country: None (occurrence: None)
  Receive Date: 20120813
  Receipt Date: 20120809
  Transmission Date: 20120928
  Serious: Yes (Life-Threatening)
  Sender: FDA-Public Use
  Company Number: CN-ASTRAZENECA-2012SE56419

PATIENT
  Age: 37 Year
  Sex: Female

DRUGS (2)
  1. EPINEPHRINE [Concomitant]
     Indication: LOCAL ANAESTHESIA
     Route: 061
     Dates: start: 20100309, end: 20100309
  2. LIDOCAINE [Suspect]
     Indication: LOCAL ANAESTHESIA
     Route: 061
     Dates: start: 20100309, end: 20100309

REACTIONS (1)
  - TOXICITY TO VARIOUS AGENTS [None]
